FAERS Safety Report 13986714 (Version 2)
Quarter: 2017Q4

REPORT INFORMATION
  Report Type: Spontaneous
  Country: JP (occurrence: JP)
  Receive Date: 20170919
  Receipt Date: 20171006
  Transmission Date: 20180321
  Serious: Yes (Death)
  Sender: FDA-Public Use
  Company Number: JP-JNJFOC-20170917206

PATIENT
  Age: 63 Year
  Sex: Female

DRUGS (8)
  1. ZETIA [Concomitant]
     Active Substance: EZETIMIBE
     Route: 048
     Dates: start: 20140918, end: 20161217
  2. CANAGLU [Suspect]
     Active Substance: CANAGLIFLOZIN
     Indication: TYPE 2 DIABETES MELLITUS
     Route: 048
     Dates: start: 20150516, end: 20161217
  3. SINGULAIR [Concomitant]
     Active Substance: MONTELUKAST SODIUM
     Route: 048
     Dates: start: 20140918, end: 20161217
  4. ARICEPT [Concomitant]
     Active Substance: DONEPEZIL HYDROCHLORIDE
     Route: 048
     Dates: start: 20140918, end: 20161217
  5. AIMIX [Concomitant]
     Active Substance: AMLODIPINE BESYLATE\IRBESARTAN
     Route: 048
     Dates: start: 20140918, end: 20161217
  6. NESINA [Concomitant]
     Active Substance: ALOGLIPTIN BENZOATE
     Indication: TYPE 2 DIABETES MELLITUS
     Route: 048
     Dates: start: 20140918, end: 20161217
  7. TAKELDA [Concomitant]
     Active Substance: ASPIRIN\LANSOPRAZOLE
     Route: 048
     Dates: start: 20140918, end: 20161217
  8. MAGMITT [Concomitant]
     Active Substance: MAGNESIUM OXIDE
     Route: 048
     Dates: start: 20140918, end: 20161217

REACTIONS (1)
  - Lung neoplasm malignant [Fatal]

NARRATIVE: CASE EVENT DATE: 20161217
